FAERS Safety Report 10341980 (Version 2)
Quarter: 2014Q3

REPORT INFORMATION
  Report Type: Spontaneous
  Country: IT (occurrence: None)
  Receive Date: 20140723
  Receipt Date: 20140813
  Transmission Date: 20150326
  Serious: Yes (Other)
  Sender: FDA-Public Use
  Company Number: 2439360

PATIENT
  Age: 66 Year
  Sex: Female

DRUGS (6)
  1. DELTACORTENE [Concomitant]
     Active Substance: PREDNISONE
  2. CARBOPLATIN. [Suspect]
     Active Substance: CARBOPLATIN
     Indication: LUNG ADENOCARCINOMA
     Dosage: 350 MG, CYCLICAL, INTRAVENOUS
     Route: 042
     Dates: start: 20140305, end: 20140509
  3. GEMCITABINE HYDROCHLORIDE. [Suspect]
     Active Substance: GEMCITABINE HYDROCHLORIDE
     Indication: LUNG ADENOCARCINOMA
     Dosage: 1500 MG, CYCLICAL, INTRAVENOUS
     Route: 042
     Dates: start: 20140305
  4. LORAZEPAM. [Concomitant]
     Active Substance: LORAZEPAM
  5. FLUOXETINE [Concomitant]
     Active Substance: FLUOXETINE\FLUOXETINE HYDROCHLORIDE
  6. ONDANSETRON [Concomitant]
     Active Substance: ONDANSETRON

REACTIONS (2)
  - Thrombocytopenia [None]
  - Thrombophlebitis [None]

NARRATIVE: CASE EVENT DATE: 20140418
